FAERS Safety Report 11404338 (Version 1)
Quarter: 2015Q3

REPORT INFORMATION
  Report Type: Spontaneous
  Country: ES (occurrence: ES)
  Receive Date: 20150821
  Receipt Date: 20150821
  Transmission Date: 20151125
  Serious: Yes (Death, Other)
  Sender: FDA-Public Use
  Company Number: PHHY2015ES099101

PATIENT
  Age: 12 Year
  Sex: Female

DRUGS (7)
  1. PREDNISONE. [Suspect]
     Active Substance: PREDNISONE
     Dosage: 35 MG PER DAY
     Route: 048
  2. MYCOPHENOLATE MOFETIL. [Suspect]
     Active Substance: MYCOPHENOLATE MOFETIL
     Indication: SYSTEMIC LUPUS ERYTHEMATOSUS
     Dosage: 1.5 G, PER DAY
     Route: 065
     Dates: start: 200905, end: 200907
  3. PREDNISONE. [Suspect]
     Active Substance: PREDNISONE
     Indication: SYSTEMIC LUPUS ERYTHEMATOSUS
     Dosage: 2 MG/KG/DAY
     Route: 048
  4. RITUXIMAB [Concomitant]
     Active Substance: RITUXIMAB
     Indication: NEPHRITIS
     Dosage: 375 MG/M2/ WEEK (4 DOSES)
     Route: 042
     Dates: start: 200905, end: 200907
  5. PREDNISONE. [Suspect]
     Active Substance: PREDNISONE
     Dosage: 45 MG PER DAY
     Route: 048
  6. HYDROXYCHLOROQUINE [Suspect]
     Active Substance: HYDROXYCHLOROQUINE
     Indication: SYSTEMIC LUPUS ERYTHEMATOSUS
     Dosage: 200 MG, UNK
     Route: 065
  7. CYCLOPHOSPHAMIDE. [Concomitant]
     Active Substance: CYCLOPHOSPHAMIDE
     Indication: SYSTEMIC LUPUS ERYTHEMATOSUS
     Dosage: 500 MG/M2, 3 MONTHLY
     Route: 042
     Dates: start: 200902, end: 200904

REACTIONS (20)
  - Systemic lupus erythematosus [Unknown]
  - Hyperinsulinism [Unknown]
  - Acanthosis nigricans [Unknown]
  - Psychiatric symptom [Unknown]
  - Hypotension [Unknown]
  - Rash pustular [Unknown]
  - Cachexia [Unknown]
  - Nephritis [Unknown]
  - Pyrexia [Unknown]
  - Insulin resistance syndrome [Unknown]
  - Hypoglycaemia [Unknown]
  - Streptococcal infection [Fatal]
  - Depressed level of consciousness [Unknown]
  - Meningism [Unknown]
  - Disease recurrence [Unknown]
  - Encephalitis brain stem [Unknown]
  - Headache [Unknown]
  - Vomiting [Unknown]
  - Polycystic ovaries [Unknown]
  - Pericarditis [Unknown]
